FAERS Safety Report 4301262-1 (Version None)
Quarter: 2004Q1

REPORT INFORMATION
  Report Type: 
  Country: None (occurrence: None)
  Receive Date: 20040219
  Receipt Date: 20040212
  Transmission Date: 20041129
  Serious: No
  Sender: FDA-Public Use
  Company Number: 2004AP00839

PATIENT
  Age: 68 Year
  Sex: Male

DRUGS (3)
  1. DIPRIVAN [Suspect]
     Indication: GENERAL ANAESTHESIA
     Dosage: 60 MG DAILY IV
     Route: 042
  2. MEPIVACAINE HCL [Concomitant]
  3. FENTANYL CITRATE [Concomitant]

REACTIONS (3)
  - ARTERIOSPASM CORONARY [None]
  - ELECTROCARDIOGRAM ST SEGMENT ELEVATION [None]
  - PROCEDURAL HYPOTENSION [None]
